FAERS Safety Report 19797904 (Version 1)
Quarter: 2021Q3

REPORT INFORMATION
  Report Type: Spontaneous
  Country: US (occurrence: US)
  Receive Date: 20210906
  Receipt Date: 20210906
  Transmission Date: 20211014
  Serious: No
  Sender: FDA-Public Use
  Company Number: None

PATIENT
  Age: 50 Year
  Sex: Male
  Weight: 76.5 kg

DRUGS (8)
  1. B?6 [Concomitant]
  2. LITHIUM. [Concomitant]
     Active Substance: LITHIUM
  3. FISH  OIL [Suspect]
     Active Substance: FISH OIL
  4. MAGNESIUM CITRATE. [Concomitant]
     Active Substance: MAGNESIUM CITRATE
  5. D?3 [Suspect]
     Active Substance: CHOLECALCIFEROL
  6. NAPROXEN. [Suspect]
     Active Substance: NAPROXEN
     Indication: HEADACHE
     Dosage: QUANTITY:1 TABLET(S);OTHER FREQUENCY:ONCE;?
     Route: 048
  7. FLUTICASONE. [Concomitant]
     Active Substance: FLUTICASONE
  8. MULTI?VITAMIN [Concomitant]
     Active Substance: .ALPHA.-TOCOPHEROL ACETATE, DL-\ASCORBIC ACID\CYANOCOBALAMIN\FLUORIDE ION\FOLIC ACID\NIACIN\PYRIDOXINE\RIBOFLAVIN\THIAMINE\VITAMIN A\VITAMIN D

REACTIONS (3)
  - Aphthous ulcer [None]
  - Lip swelling [None]
  - Paraesthesia [None]

NARRATIVE: CASE EVENT DATE: 20210827
